FAERS Safety Report 17657210 (Version 1)
Quarter: 2020Q2

REPORT INFORMATION
  Report Type: Spontaneous
  Country: US (occurrence: US)
  Receive Date: 20200410
  Receipt Date: 20200410
  Transmission Date: 20200713
  Serious: No
  Sender: FDA-Public Use
  Company Number: US-NEXGEN PHARMA, INC.-2082647

PATIENT
  Sex: Female

DRUGS (1)
  1. BACC 7028 (BUTALBITAL 50MG, ACETAMINOPHEN 300MG, CAFFEINE 40MG AND COD [Suspect]
     Active Substance: ACETAMINOPHEN\BUTALBITAL\CAFFEINE\CODEINE PHOSPHATE
     Route: 048

REACTIONS (1)
  - Flat affect [Unknown]
